FAERS Safety Report 14487552 (Version 1)
Quarter: 2018Q1

REPORT INFORMATION
  Report Type: Spontaneous
  Country: CA (occurrence: CA)
  Receive Date: 20180205
  Receipt Date: 20180205
  Transmission Date: 20180509
  Serious: Yes (Other)
  Sender: FDA-Public Use
  Company Number: CA-CELLTRION INC.-2017CA004112

PATIENT

DRUGS (8)
  1. METHOTREXATE. [Concomitant]
     Active Substance: METHOTREXATE
     Dosage: 10 UNK, WEEKLY
     Route: 048
  2. INFLECTRA [Suspect]
     Active Substance: INFLIXIMAB-DYYB
     Indication: RHEUMATOID ARTHRITIS
     Dosage: 600 MG, 0, 2, 6 WEEKS, THEN EVERY 8 WEEKS FOR 11 MONTHS
     Route: 042
     Dates: start: 20161201
  3. LEUCOVORIN                         /00566701/ [Concomitant]
     Active Substance: LEUCOVORIN
     Dosage: 5 MG, UNK
     Route: 048
     Dates: start: 201503
  4. QUINAPRIL. [Concomitant]
     Active Substance: QUINAPRIL
     Dosage: 40 MG, DAILY
     Route: 065
     Dates: start: 2012
  5. ROSUVASTATIN. [Concomitant]
     Active Substance: ROSUVASTATIN
     Dosage: 20 MG, DAILY
     Route: 065
     Dates: start: 2012
  6. HYDROCHLOROTHIAZIDE. [Concomitant]
     Active Substance: HYDROCHLOROTHIAZIDE
     Dosage: 5 MG, DAILY
     Route: 065
     Dates: start: 2014
  7. OXYCODONE                          /00045603/ [Concomitant]
     Active Substance: OXYCODONE
     Dosage: 3.25 MG/5 MG, 6-8 PILLS A DAY
     Route: 048
  8. METHOTREXATE. [Concomitant]
     Active Substance: METHOTREXATE
     Dosage: 2.5 MG, WEEKLY
     Route: 048
     Dates: start: 201503

REACTIONS (2)
  - Blood pressure fluctuation [Unknown]
  - Prescribed overdose [Unknown]

NARRATIVE: CASE EVENT DATE: 20161201
